FAERS Safety Report 25552126 (Version 1)
Quarter: 2025Q3

REPORT INFORMATION
  Report Type: Other
  Country: GB (occurrence: GB)
  Receive Date: 20250715
  Receipt Date: 20250715
  Transmission Date: 20251021
  Serious: Yes (Hospitalization, Other)
  Sender: STRIDES
  Company Number: GB-PHARMVIT-4556-3352-ER25-RN1512

PATIENT
  Age: 32 Year
  Sex: Female

DRUGS (3)
  1. PREDNISOLONE [Interacting]
     Active Substance: PREDNISOLONE
     Indication: Systemic lupus erythematosus
     Route: 065
  2. HYDROXYCHLOROQUINE [Concomitant]
     Active Substance: HYDROXYCHLOROQUINE
     Indication: Product used for unknown indication
     Route: 065
  3. AZATHIOPRINE [Concomitant]
     Active Substance: AZATHIOPRINE
     Indication: Product used for unknown indication
     Route: 065

REACTIONS (7)
  - Pulmonary cavitation [Recovered/Resolved]
  - Drug-disease interaction [Recovered/Resolved]
  - Immunosuppression [Recovered/Resolved]
  - Neutropenic sepsis [Recovered/Resolved]
  - Pneumonia streptococcal [Recovered/Resolved]
  - Fungal infection [Recovered/Resolved]
  - Exposure during pregnancy [Recovered/Resolved]
